FAERS Safety Report 9818947 (Version 1)
Quarter: 2014Q1

REPORT INFORMATION
  Report Type: Report from Study
  Country: MX (occurrence: MX)
  Receive Date: 20140115
  Receipt Date: 20140115
  Transmission Date: 20141002
  Serious: Yes (Death, Other)
  Sender: FDA-Public Use
  Company Number: PHHY2014MX004214

PATIENT
  Age: 76 Year
  Sex: Female

DRUGS (4)
  1. EXFORGE HCT [Suspect]
     Indication: HYPERTENSION
     Dosage: 1 TABLET (320/10/25 MG) DAILY
     Route: 048
     Dates: start: 201305
  2. CO-DIOVAN [Concomitant]
     Dosage: UNK UKN, UNK
     Dates: start: 201210
  3. ANTICOAGULANTS [Concomitant]
     Dosage: UNK UKN, UNK
  4. BRAXAN//AMIODARONE HYDROCHLORIDE [Concomitant]
     Indication: BLOOD GLUCOSE ABNORMAL
     Dosage: 1 UKN, DAILY
     Dates: start: 201208

REACTIONS (3)
  - Peripheral vascular disorder [Fatal]
  - Perforated ulcer [Fatal]
  - Diabetes mellitus [Unknown]
